FAERS Safety Report 8528899 (Version 2)
Quarter: 2013Q4

REPORT INFORMATION
  Report Type: Spontaneous
  Country: US (occurrence: US)
  Receive Date: 20120425
  Receipt Date: 20131113
  Transmission Date: 20140711
  Serious: No
  Sender: FDA-Public Use
  Company Number: US-JNJFOC-20120407111

PATIENT
  Age: 70 Year
  Sex: Female
  Weight: 76.66 kg

DRUGS (2)
  1. DURAGESIC [Suspect]
     Indication: NERVE INJURY
     Route: 062
  2. DURAGESIC [Suspect]
     Indication: INTERVERTEBRAL DISC DEGENERATION
     Route: 062

REACTIONS (4)
  - Drug ineffective [Recovered/Resolved]
  - Blood pressure increased [Recovered/Resolved]
  - Poor quality drug administered [Recovered/Resolved]
  - Product quality issue [Unknown]
